FAERS Safety Report 9008774 (Version 3)
Quarter: 2013Q1

REPORT INFORMATION
  Report Type: Spontaneous
  Country: DE (occurrence: DE)
  Receive Date: 20130111
  Receipt Date: 20130205
  Transmission Date: 20140127
  Serious: Yes (Life-Threatening, Hospitalization)
  Sender: FDA-Public Use
  Company Number: DE-009507513-1301DEU002701

PATIENT
  Age: 7 Year
  Sex: Male
  Weight: 21.5 kg

DRUGS (3)
  1. NOXAFIL [Suspect]
     Indication: CANDIDA INFECTION
     Dosage: 100 MG, TID
     Route: 048
     Dates: start: 201202, end: 20130109
  2. PENICILLIN (UNSPECIFIED) [Concomitant]
     Indication: PROPHYLAXIS
     Dosage: 5 MILLION IU, BID
  3. COTRIM [Concomitant]

REACTIONS (1)
  - Haemolytic uraemic syndrome [Recovering/Resolving]
